FAERS Safety Report 6674743-3 (Version None)
Quarter: 2010Q2

REPORT INFORMATION
  Report Type: 
  Country: None (occurrence: None)
  Receive Date: 20100409
  Receipt Date: 20100330
  Transmission Date: 20101027
  Serious: No
  Sender: FDA-Public Use
  Company Number: US-B.I. PHARMACEUTICALS,INC./RIDGEFIELD-2010-BP-03692BP

PATIENT
  Age: 80 Year
  Sex: Female

DRUGS (3)
  1. SPIRIVA [Suspect]
     Indication: CHRONIC OBSTRUCTIVE PULMONARY DISEASE
     Dosage: 18 MCG
     Route: 055
     Dates: start: 20080101
  2. EFFEXOR [Concomitant]
     Indication: DEPRESSION
  3. POLYGAM S/D [Concomitant]
     Indication: NEUROPATHY PERIPHERAL
     Route: 042

REACTIONS (1)
  - BLOOD PRESSURE INCREASED [None]
